FAERS Safety Report 8252314-5 (Version None)
Quarter: 2012Q2

REPORT INFORMATION
  Report Type: 
  Country: None (occurrence: None)
  Receive Date: 20120402
  Receipt Date: 20111012
  Transmission Date: 20120825
  Serious: No
  Sender: FDA-Public Use
  Company Number: US-ABBOTT-11P-163-0864315-00

PATIENT
  Sex: Female
  Weight: 52.21 kg

DRUGS (1)
  1. ANDROGEL [Suspect]
     Indication: ACCIDENTAL EXPOSURE

REACTIONS (2)
  - RASH [None]
  - ACCIDENTAL EXPOSURE [None]
